FAERS Safety Report 25912369 (Version 1)
Quarter: 2025Q4

REPORT INFORMATION
  Report Type: Report from Study
  Country: US (occurrence: US)
  Receive Date: 20251013
  Receipt Date: 20251013
  Transmission Date: 20260118
  Serious: Yes (Hospitalization, Other)
  Sender: SANDOZ
  Company Number: US-002147023-NVSC2022US067424

PATIENT
  Sex: Female
  Weight: 45.351 kg

DRUGS (17)
  1. TREPROSTINIL [Suspect]
     Active Substance: TREPROSTINIL
     Indication: Pulmonary arterial hypertension
     Dosage: (66NG/KG/MIN), CONT, (5 MG/ML)
     Route: 042
     Dates: start: 20220111
  2. TREPROSTINIL [Suspect]
     Active Substance: TREPROSTINIL
     Dosage: (74NG/KG/MIN), CONT, (1MG/ML)
     Route: 042
     Dates: start: 20220111
  3. TREPROSTINIL [Suspect]
     Active Substance: TREPROSTINIL
     Dosage: UNK, CONT (80 NG PER KG PER MIN.)
     Route: 042
  4. TREPROSTINIL [Suspect]
     Active Substance: TREPROSTINIL
     Dosage: (96NG/KG/MIN), CONT, (1MG/ML)
     Route: 042
  5. TREPROSTINIL [Suspect]
     Active Substance: TREPROSTINIL
     Dosage: 100 NG/KG/ MIN,CONT
     Route: 042
     Dates: start: 20220111
  6. TREPROSTINIL [Suspect]
     Active Substance: TREPROSTINIL
     Dosage: 141 NG/KG/MIN, CONTINUOUS
     Route: 042
     Dates: start: 20220111
  7. AMBRISENTAN [Concomitant]
     Active Substance: AMBRISENTAN
     Indication: Product used for unknown indication
     Dosage: UNK
     Route: 065
  8. ASPIRIN [Concomitant]
     Active Substance: ASPIRIN
     Indication: Product used for unknown indication
     Dosage: UNK
     Route: 065
  9. ATORVASTATIN CALCIUM [Concomitant]
     Active Substance: ATORVASTATIN CALCIUM
     Indication: Product used for unknown indication
     Dosage: UNK
     Route: 065
  10. BIOTIN [Concomitant]
     Active Substance: BIOTIN
     Indication: Product used for unknown indication
     Dosage: UNK
     Route: 065
  11. CYANOCOBALAMIN [Concomitant]
     Active Substance: CYANOCOBALAMIN
     Indication: Product used for unknown indication
     Dosage: UNK
     Route: 065
  12. FLUOXETINE HYDROCHLORIDE [Concomitant]
     Active Substance: FLUOXETINE HYDROCHLORIDE
     Indication: Product used for unknown indication
     Dosage: UNK
     Route: 065
  13. FUROSEMIDE [Concomitant]
     Active Substance: FUROSEMIDE
     Indication: Product used for unknown indication
     Dosage: UNK
     Route: 065
  14. OMEPRAZOLE [Concomitant]
     Active Substance: OMEPRAZOLE
     Indication: Product used for unknown indication
     Dosage: UNK
     Route: 065
  15. OXYGEN [Concomitant]
     Active Substance: OXYGEN
     Indication: Product used for unknown indication
     Dosage: UNK
     Route: 065
  16. SILDENAFIL CITRATE [Concomitant]
     Active Substance: SILDENAFIL CITRATE
     Indication: Product used for unknown indication
     Dosage: UNK
     Route: 065
  17. TADALAFIL [Concomitant]
     Active Substance: TADALAFIL
     Indication: Product used for unknown indication
     Dosage: UNK
     Route: 065

REACTIONS (11)
  - Catheter site infection [Unknown]
  - Malaise [Unknown]
  - Syncope [Unknown]
  - Photophobia [Unknown]
  - Dyspnoea exertional [Unknown]
  - Headache [Unknown]
  - Pain in jaw [Unknown]
  - Hypotension [Unknown]
  - Rash [Unknown]
  - Pruritus [Unknown]
  - Diarrhoea [Unknown]
